FAERS Safety Report 4595819-0 (Version None)
Quarter: 2005Q1

REPORT INFORMATION
  Report Type: 
  Country: None (occurrence: None)
  Receive Date: 20050224
  Receipt Date: 20050224
  Transmission Date: 20050727
  Serious: Yes (Death)
  Sender: FDA-Public Use
  Company Number: None

PATIENT
  Sex: Male
  Weight: 71.4 kg

DRUGS (2)
  1. CARBOPLATIN [Suspect]
     Dosage: AUC 6
     Dates: start: 20050131
  2. TAXOL [Suspect]
     Dosage: 200 MG/M2

REACTIONS (5)
  - ASTHENIA [None]
  - BONE DISORDER [None]
  - DISEASE PROGRESSION [None]
  - DYSPNOEA [None]
  - PAIN [None]
